FAERS Safety Report 5955908-2 (Version None)
Quarter: 2008Q4

REPORT INFORMATION
  Report Type: 
  Country: None (occurrence: None)
  Receive Date: 20081113
  Receipt Date: 20081030
  Transmission Date: 20090506
  Serious: Yes (Hospitalization, Other)
  Sender: FDA-Public Use
  Company Number: 2008S1012476

PATIENT
  Age: 30 Year
  Sex: Female
  Weight: 78.9259 kg

DRUGS (14)
  1. ZONISAMIDE [Suspect]
     Indication: CONVULSION
     Dosage: 300 MG; TWICE A DAY; ORAL
     Route: 048
     Dates: end: 20080614
  2. ZONEGRAN [Suspect]
     Indication: CONVULSION
     Dosage: 300 MG; TWICE A DAY; ORAL
     Route: 048
     Dates: start: 20051019, end: 20080101
  3. PENTASA [Concomitant]
  4. DILANTIN /00017401/ [Concomitant]
  5. DILANTIN /00017401/ [Concomitant]
  6. SEROQUEL [Concomitant]
  7. EFFEXOR XR [Concomitant]
  8. LEVOTHYROXINE SODIUM [Concomitant]
  9. OXYCODONE HCL [Concomitant]
  10. SOMA [Concomitant]
  11. ALBUTEROL [Concomitant]
  12. METOPROLOL TARTRATE [Concomitant]
  13. WARFARIN SODIUM [Concomitant]
  14. TYLENOL (CAPLET) [Concomitant]

REACTIONS (13)
  - ABDOMINAL PAIN UPPER [None]
  - AMNESIA [None]
  - ANOREXIA [None]
  - CHOKING [None]
  - JOINT SWELLING [None]
  - LOSS OF CONSCIOUSNESS [None]
  - MUSCLE SPASMS [None]
  - OEDEMA PERIPHERAL [None]
  - PAIN [None]
  - RESPIRATORY FAILURE [None]
  - SOMNOLENCE [None]
  - VOMITING [None]
  - WEIGHT DECREASED [None]
